FAERS Safety Report 5450694-7 (Version None)
Quarter: 2007Q3

REPORT INFORMATION
  Report Type: 
  Country: None (occurrence: None)
  Receive Date: 20070910
  Receipt Date: 20070831
  Transmission Date: 20080115
  Serious: Yes (Hospitalization)
  Sender: FDA-Public Use
  Company Number: DSU-2007-00559

PATIENT
  Sex: Male

DRUGS (4)
  1. BENICAR [Suspect]
     Indication: HYPERTENSION
     Dosage: 20 MG (20 MG, 1 IN 1 D), PER ORAL; 20 MG (20 MG, 1 IN 1 D), PER ORAL
     Route: 048
     Dates: start: 20070701, end: 20070801
  2. BENICAR [Suspect]
     Indication: HYPERTENSION
     Dosage: 20 MG (20 MG, 1 IN 1 D), PER ORAL; 20 MG (20 MG, 1 IN 1 D), PER ORAL
     Route: 048
     Dates: start: 20070801, end: 20070801
  3. LISINOPRIL [Concomitant]
  4. DIURETICS (DIURETICS) [Concomitant]

REACTIONS (3)
  - BLOOD CREATININE INCREASED [None]
  - BLOOD POTASSIUM INCREASED [None]
  - HYPOTENSION [None]
